FAERS Safety Report 10057819 (Version 7)
Quarter: 2015Q4

REPORT INFORMATION
  Report Type: Report from Study
  Country: IL (occurrence: IL)
  Receive Date: 20140404
  Receipt Date: 20151207
  Transmission Date: 20160304
  Serious: Yes (Life-Threatening)
  Sender: FDA-Public Use
  Company Number: IL-ROCHE-1376184

PATIENT
  Age: 57 Year
  Sex: Female

DRUGS (53)
  1. TRASTUZUMAB [Suspect]
     Active Substance: TRASTUZUMAB
     Indication: HER-2 POSITIVE BREAST CANCER
     Dosage: LOADING DOSE
     Route: 042
     Dates: start: 20130711, end: 20130711
  2. DOCETAXEL. [Suspect]
     Active Substance: DOCETAXEL
     Indication: HER-2 POSITIVE BREAST CANCER
     Dosage: DATE OF LAST DOSE PRIOR TO SAE: 20 MAR 2014
     Route: 042
     Dates: start: 20130715
  3. METFORMIN [Concomitant]
     Active Substance: METFORMIN HYDROCHLORIDE
     Route: 065
     Dates: start: 20110314, end: 20140329
  4. HUMALOG MIX25 [Concomitant]
     Route: 065
     Dates: start: 20130923
  5. BETACORTEN G [Concomitant]
     Route: 065
     Dates: start: 20141024
  6. DIPYRONE [Concomitant]
     Active Substance: DIPYRONE
     Dosage: 2 GR
     Route: 065
     Dates: start: 20130711, end: 20130711
  7. DIPYRONE [Concomitant]
     Active Substance: DIPYRONE
     Route: 065
     Dates: start: 20130923
  8. LOPERAMIDE [Concomitant]
     Active Substance: LOPERAMIDE
     Route: 065
     Dates: start: 20140228, end: 20140301
  9. LOPERAMIDE [Concomitant]
     Active Substance: LOPERAMIDE
     Route: 065
     Dates: start: 20130803, end: 20130805
  10. TRAMADOL HCL [Concomitant]
     Active Substance: TRAMADOL HYDROCHLORIDE
     Route: 065
     Dates: start: 20130923
  11. TRAMADEX [Concomitant]
     Active Substance: TRAMADOL
     Route: 065
     Dates: start: 20141204, end: 20141204
  12. EVOREL PATCH [Concomitant]
     Dosage: 2 PATCH FOR 7 DAYS
     Route: 065
     Dates: start: 20140522
  13. DIPYRONE [Concomitant]
     Active Substance: DIPYRONE
     Route: 065
     Dates: start: 20141204
  14. DIPYRONE [Concomitant]
     Active Substance: DIPYRONE
     Route: 065
     Dates: start: 20150115, end: 20150115
  15. HYDROCORTISONE. [Concomitant]
     Active Substance: HYDROCORTISONE
     Route: 065
     Dates: start: 20130715, end: 20130715
  16. AMARYL [Concomitant]
     Active Substance: GLIMEPIRIDE
     Route: 065
     Dates: start: 20121129
  17. ZANTAC [Concomitant]
     Active Substance: RANITIDINE HYDROCHLORIDE
     Route: 065
     Dates: start: 20130711
  18. SYNTHOMYCIN [Concomitant]
     Route: 065
     Dates: start: 20131226
  19. ZOPICLONE [Concomitant]
     Active Substance: ZOPICLONE
     Route: 065
     Dates: start: 20130725
  20. OFLOXACIN. [Concomitant]
     Active Substance: OFLOXACIN
     Route: 065
     Dates: start: 20140805, end: 20140815
  21. DETHAMYCIN [Concomitant]
     Dosage: DROPS
     Route: 065
     Dates: start: 201410
  22. HYDROCORTISONE. [Concomitant]
     Active Substance: HYDROCORTISONE
     Route: 065
     Dates: start: 20130801, end: 20130801
  23. ORALTEN [Concomitant]
     Route: 065
     Dates: start: 20130723, end: 20130909
  24. LOPERAMIDE [Concomitant]
     Active Substance: LOPERAMIDE
     Route: 065
     Dates: start: 20130721, end: 20130721
  25. LEVEMIR [Concomitant]
     Active Substance: INSULIN DETEMIR
     Dosage: 40UNITS
     Route: 065
     Dates: start: 20140330
  26. CIPROLEX [Concomitant]
     Active Substance: CIPROFLOXACIN HYDROCHLORIDE
     Route: 065
     Dates: start: 20121130
  27. PROCTO-GLYVENOL CREAM [Concomitant]
     Route: 065
     Dates: start: 20130718, end: 20130820
  28. ORALTEN [Concomitant]
     Route: 065
     Dates: start: 20140816, end: 20140823
  29. AGISTEN [Concomitant]
     Dosage: 0.1GR
     Route: 065
     Dates: start: 20140816, end: 20140819
  30. LORIVAN [Concomitant]
     Route: 065
     Dates: start: 20141023, end: 20141023
  31. TRASTUZUMAB [Suspect]
     Active Substance: TRASTUZUMAB
     Dosage: MAINTENANCE DOSE,?DATE OF LAST DOSE PRIOR TO SAE: 20/MAR/2014
     Route: 042
     Dates: start: 20130801
  32. PARACETAMOL [Concomitant]
     Active Substance: ACETAMINOPHEN
     Dosage: 1.5 GR
     Route: 065
     Dates: start: 20130711, end: 20130711
  33. NEULASTIM [Concomitant]
     Active Substance: PEGFILGRASTIM
     Route: 065
     Dates: start: 20130712
  34. PHENAZOPYRIDINE HCL [Concomitant]
     Active Substance: PHENAZOPYRIDINE HYDROCHLORIDE
     Route: 065
     Dates: start: 20140803, end: 20140815
  35. TRAMADEX [Concomitant]
     Active Substance: TRAMADOL
     Dosage: DROPS
     Route: 065
     Dates: start: 20140930, end: 20141003
  36. PERTUZUMAB [Suspect]
     Active Substance: PERTUZUMAB
     Indication: HER-2 POSITIVE BREAST CANCER
     Dosage: LOADING DOSE
     Route: 042
     Dates: start: 20130711, end: 20130711
  37. PERTUZUMAB [Suspect]
     Active Substance: PERTUZUMAB
     Dosage: MAINTENANCE DOSE?DATE OF LAST DOSE PRIOR TO SAE: 20/MAR/2014
     Route: 042
     Dates: start: 20130801
  38. LEVEMIR [Concomitant]
     Active Substance: INSULIN DETEMIR
     Dosage: 100 UNITS
     Route: 065
     Dates: start: 20130507, end: 20140329
  39. AMARYL [Concomitant]
     Active Substance: GLIMEPIRIDE
     Route: 065
     Dates: start: 20130715, end: 20130715
  40. FLUCONAZOLE. [Concomitant]
     Active Substance: FLUCONAZOLE
     Route: 065
     Dates: start: 20140816, end: 20140816
  41. LOSARDEX [Concomitant]
     Route: 065
     Dates: start: 20141101, end: 20141121
  42. OFLODEX [Concomitant]
     Route: 065
     Dates: start: 20141229, end: 20150102
  43. ACAMOL TSINUN CLASSIC DAY (PARACETAMOL/PSEUDOEPHEDRINE HYDROCHLORIDE) [Concomitant]
     Dosage: 2 TABLETS PER DAY
     Route: 065
     Dates: start: 20150306, end: 20150307
  44. LORATADINE. [Concomitant]
     Active Substance: LORATADINE
     Route: 065
     Dates: start: 20130715, end: 20130715
  45. ENALAPRIL [Concomitant]
     Active Substance: ENALAPRIL
     Route: 065
     Dates: start: 20041004, end: 20140831
  46. CRESTOR [Concomitant]
     Active Substance: ROSUVASTATIN CALCIUM
     Route: 065
     Dates: start: 20080615
  47. TRAMADOL HCL [Concomitant]
     Active Substance: TRAMADOL HYDROCHLORIDE
     Route: 048
     Dates: start: 20130923
  48. PROTHIAZINE [Concomitant]
     Route: 065
     Dates: start: 20130715, end: 20131013
  49. PHENERGAN [Concomitant]
     Active Substance: PROMETHAZINE HYDROCHLORIDE
     Route: 065
     Dates: start: 20130715, end: 20130715
  50. METFORMIN [Concomitant]
     Active Substance: METFORMIN HYDROCHLORIDE
     Route: 065
     Dates: start: 20140330
  51. SETRON (ISRAEL) [Concomitant]
     Route: 065
     Dates: start: 20130711
  52. TRAMADEX [Concomitant]
     Active Substance: TRAMADOL
     Route: 065
     Dates: start: 20150115, end: 20150115
  53. MAXITROL [Concomitant]
     Active Substance: DEXAMETHASONE\NEOMYCIN SULFATE\POLYMYXIN B SULFATE
     Route: 065
     Dates: start: 201410

REACTIONS (1)
  - Acute kidney injury [Recovered/Resolved]

NARRATIVE: CASE EVENT DATE: 20140330
